FAERS Safety Report 9437296 (Version 2)
Quarter: 2013Q3

REPORT INFORMATION
  Report Type: Spontaneous
  Country: ES (occurrence: None)
  Receive Date: 20130731
  Receipt Date: 20130814
  Transmission Date: 20140515
  Serious: Yes (Death)
  Sender: FDA-Public Use
  Company Number: IMP_06768_2013

PATIENT
  Age: 59 Year
  Sex: Female

DRUGS (1)
  1. CHLOROQUINE [Suspect]
     Indication: CUTANEOUS LUPUS ERYTHEMATOSUS
     Dosage: (DF)  25 YEARS

REACTIONS (5)
  - Cardiac disorder [None]
  - Conduction disorder [None]
  - Cardiac failure [None]
  - Cardiotoxicity [None]
  - Ventricular hypertrophy [None]
